FAERS Safety Report 16179566 (Version 1)
Quarter: 2019Q2

REPORT INFORMATION
  Report Type: Spontaneous
  Country: JP (occurrence: JP)
  Receive Date: 20190410
  Receipt Date: 20190410
  Transmission Date: 20190711
  Serious: Yes (Other)
  Sender: FDA-Public Use
  Company Number: JP-TEVA-2019-JP-1037146

PATIENT
  Age: 80 Year
  Sex: Female

DRUGS (1)
  1. BENET (RISEDRONATE SODIUM) [Suspect]
     Active Substance: RISEDRONATE SODIUM
     Indication: OSTEOPOROSIS
     Route: 048

REACTIONS (2)
  - Fractured sacrum [Unknown]
  - Pain in extremity [None]

NARRATIVE: CASE EVENT DATE: 20190329
